FAERS Safety Report 17634889 (Version 1)
Quarter: 2020Q2

REPORT INFORMATION
  Report Type: Spontaneous
  Country: CN (occurrence: CN)
  Receive Date: 20200407
  Receipt Date: 20200407
  Transmission Date: 20200713
  Serious: Yes (Other)
  Sender: FDA-Public Use
  Company Number: CN-ROCHE-2574305

PATIENT
  Age: 3 Year
  Sex: Male

DRUGS (7)
  1. METHYLPREDNISOLONE. [Concomitant]
     Active Substance: METHYLPREDNISOLONE
     Dosage: 20 MG/KG/DAY
     Route: 042
  2. HYDROXYCHLOROQUINE [Concomitant]
     Active Substance: HYDROXYCHLOROQUINE
     Indication: DERMATOMYOSITIS
     Route: 048
  3. MERCAPTOPURINE. [Concomitant]
     Active Substance: MERCAPTOPURINE
     Indication: DERMATOMYOSITIS
     Route: 048
  4. IMMUNOGLOBULIN HUMAN NORMAL [Concomitant]
     Active Substance: HUMAN IMMUNOGLOBULIN G
     Indication: DERMATOMYOSITIS
     Route: 042
  5. METHOTREXATE. [Concomitant]
     Active Substance: METHOTREXATE
     Indication: DERMATOMYOSITIS
     Route: 048
  6. MABTHERA [Suspect]
     Active Substance: RITUXIMAB
     Indication: DERMATOMYOSITIS
     Dosage: ONCE
     Route: 041
  7. PREDNISOLONE. [Concomitant]
     Active Substance: PREDNISOLONE
     Indication: DERMATOMYOSITIS
     Route: 048

REACTIONS (6)
  - Colitis [Unknown]
  - Off label use [Unknown]
  - Inflammation [Unknown]
  - Retroperitoneal infection [Unknown]
  - Abdominal infection [Unknown]
  - Intentional product use issue [Unknown]
